FAERS Safety Report 10078797 (Version 1)
Quarter: 2014Q2

REPORT INFORMATION
  Report Type: Spontaneous
  Country: GB (occurrence: None)
  Receive Date: 20140411
  Receipt Date: 20140411
  Transmission Date: 20141212
  Serious: Yes (Disabling)
  Sender: FDA-Public Use
  Company Number: AUR-APL-2014-04309

PATIENT
  Age: 92 Year
  Sex: Female
  Weight: 65 kg

DRUGS (2)
  1. DONEPEZIL (DONEPEZIL) [Suspect]
     Indication: PRODUCT USED FOR UNKNOWN INDICATION
     Dosage: UNKNOWN
     Dates: start: 20131217
  2. FOLIC ACID (FOLIC  ACID) [Concomitant]

REACTIONS (3)
  - Rhinorrhoea [None]
  - Decreased appetite [None]
  - Nasopharyngitis [None]
